FAERS Safety Report 7275032-9 (Version None)
Quarter: 2011Q1

REPORT INFORMATION
  Report Type: 
  Country: None (occurrence: None)
  Receive Date: 20110204
  Receipt Date: 20110202
  Transmission Date: 20110831
  Serious: Yes (Other)
  Sender: FDA-Public Use
  Company Number: US-AMGEN-USASP2010009681

PATIENT
  Age: 75 Year
  Sex: Male

DRUGS (9)
  1. NPLATE [Suspect]
     Indication: IDIOPATHIC THROMBOCYTOPENIC PURPURA
     Dosage: UNK
     Dates: start: 20101004, end: 20101108
  2. ALLOPURINOL [Concomitant]
  3. PREDNISONE [Concomitant]
  4. PAXIL [Concomitant]
  5. NPLATE [Suspect]
     Dosage: 1 A?G, UNK
     Dates: start: 20101004, end: 20101101
  6. VICODIN [Concomitant]
  7. DANAZOL [Concomitant]
     Indication: IDIOPATHIC THROMBOCYTOPENIC PURPURA
     Dosage: UNK
  8. AMICAR [Concomitant]
  9. METOPROLOL [Concomitant]

REACTIONS (1)
  - DEEP VEIN THROMBOSIS [None]
